FAERS Safety Report 23513867 (Version 1)
Quarter: 2024Q1

REPORT INFORMATION
  Report Type: Report from Study
  Country: PH (occurrence: PH)
  Receive Date: 20240212
  Receipt Date: 20240212
  Transmission Date: 20240410
  Serious: Yes (Death)
  Sender: FDA-Public Use
  Company Number: PH-OTSUKA-2024_003497

PATIENT
  Sex: Male

DRUGS (1)
  1. TOLVAPTAN [Suspect]
     Active Substance: TOLVAPTAN
     Indication: Renal failure
     Dosage: 1 DF, QD
     Route: 048

REACTIONS (3)
  - Pneumonia [Fatal]
  - Renal failure [Fatal]
  - Product use in unapproved indication [Unknown]
